FAERS Safety Report 5971033-9 (Version None)
Quarter: 2008Q4

REPORT INFORMATION
  Report Type: 
  Country: None (occurrence: None)
  Receive Date: 20081128
  Receipt Date: 20081119
  Transmission Date: 20090506
  Serious: Yes (Other)
  Sender: FDA-Public Use
  Company Number: PHEH2008US10407

PATIENT
  Sex: Female

DRUGS (2)
  1. RECLAST [Suspect]
     Dosage: UNK, UNK
     Dates: start: 20080901
  2. VITAMIN D [Suspect]
     Dosage: UNK, UNK

REACTIONS (8)
  - ASTHENIA [None]
  - CLUSTER HEADACHE [None]
  - FATIGUE [None]
  - INFLUENZA [None]
  - MALAISE [None]
  - MUSCLE SPASMS [None]
  - PAIN IN EXTREMITY [None]
  - SPINAL DISORDER [None]
